FAERS Safety Report 8150015-5 (Version None)
Quarter: 2012Q1

REPORT INFORMATION
  Report Type: 
  Country: None (occurrence: None)
  Receive Date: 20120218
  Receipt Date: 20120206
  Transmission Date: 20120608
  Serious: Yes (Hospitalization)
  Sender: FDA-Public Use
  Company Number: DE-TEVA-320512GER

PATIENT
  Age: 41 Year
  Sex: Female
  Weight: 75 kg

DRUGS (3)
  1. DOXORUBICIN HCL [Suspect]
     Indication: BREAST CANCER
     Route: 042
     Dates: start: 20100726, end: 20101115
  2. LAPATINIB [Suspect]
     Indication: BREAST CANCER
     Dosage: 1250 MILLIGRAM;
     Route: 048
     Dates: start: 20100726, end: 20101018
  3. PACLITAXEL [Suspect]
     Indication: BREAST CANCER
     Route: 042
     Dates: start: 20100726, end: 20101018

REACTIONS (1)
  - CELLULITIS [None]
